FAERS Safety Report 8444935-1 (Version None)
Quarter: 2012Q2

REPORT INFORMATION
  Report Type: 
  Country: None (occurrence: None)
  Receive Date: 20120605
  Receipt Date: 20120530
  Transmission Date: 20120825
  Serious: Yes (Hospitalization)
  Sender: FDA-Public Use
  Company Number: 2011SP050833

PATIENT
  Age: 23 Year
  Sex: Female
  Weight: 49.8957 kg

DRUGS (2)
  1. HEPARIN [Suspect]
     Indication: DEEP VEIN THROMBOSIS
  2. NUVARING [Suspect]
     Indication: CONTRACEPTION
     Dates: start: 20020101, end: 20071101

REACTIONS (13)
  - ACTIVATED PARTIAL THROMBOPLASTIN TIME PROLONGED [None]
  - GROIN PAIN [None]
  - MAY-THURNER SYNDROME [None]
  - CYST [None]
  - URINARY TRACT INFECTION [None]
  - DEEP VEIN THROMBOSIS [None]
  - HYPERCOAGULATION [None]
  - IRON DEFICIENCY ANAEMIA [None]
  - WHITE CLOT SYNDROME [None]
  - LUNG NEOPLASM [None]
  - INTERNATIONAL NORMALISED RATIO INCREASED [None]
  - THROMBOCYTOSIS [None]
  - PHLEBITIS [None]
